FAERS Safety Report 7421898-9 (Version None)
Quarter: 2011Q2

REPORT INFORMATION
  Report Type: 
  Country: None (occurrence: None)
  Receive Date: 20110418
  Receipt Date: 20110405
  Transmission Date: 20111010
  Serious: Yes (Hospitalization)
  Sender: FDA-Public Use
  Company Number: US-ELI_LILLY_AND_COMPANY-US201102004634

PATIENT
  Sex: Female

DRUGS (3)
  1. CYMBALTA [Suspect]
     Indication: PAIN
     Dosage: 20 MG, DAILY (1/D)
     Dates: start: 20110121, end: 20110125
  2. GABAPENTIN [Concomitant]
     Dates: start: 20110121
  3. PREDNISONE [Concomitant]

REACTIONS (14)
  - HYPERTENSION [None]
  - GASTROINTESTINAL DISORDER [None]
  - ASTHENIA [None]
  - FEELING ABNORMAL [None]
  - NAUSEA [None]
  - DYSPEPSIA [None]
  - HYPERSENSITIVITY [None]
  - LIP EXFOLIATION [None]
  - DIZZINESS [None]
  - VOMITING [None]
  - PARAESTHESIA ORAL [None]
  - OFF LABEL USE [None]
  - NERVOUS SYSTEM DISORDER [None]
  - THROAT IRRITATION [None]
